FAERS Safety Report 4774886-5 (Version None)
Quarter: 2005Q3

REPORT INFORMATION
  Report Type: 
  Country: None (occurrence: None)
  Receive Date: 20050919
  Receipt Date: 20050907
  Transmission Date: 20060218
  Serious: Yes (Hospitalization, Other)
  Sender: FDA-Public Use
  Company Number: 2005125881

PATIENT
  Age: 74 Year
  Sex: Male
  Weight: 83.9154 kg

DRUGS (13)
  1. TIKOSYN [Suspect]
     Indication: ATRIAL FIBRILLATION
     Dosage: 0.5 MG  (0.25 MG, 2 IN 1 D), ORAL
     Route: 048
  2. VYTORIN [Suspect]
     Indication: ILL-DEFINED DISORDER
     Dates: start: 20040101, end: 20050720
  3. COREG (CAREDILOL) [Concomitant]
  4. IMDUR [Concomitant]
  5. COUMADIN [Concomitant]
  6. NITROQUICK (GLYCERYL TRINITRATE) [Concomitant]
  7. METAMUCIL (^PROCTER + GAMBLE^ (GLUCOSE MONOHYDRATE, ISPAGULA HUSK) [Concomitant]
  8. ASPIRIN [Concomitant]
  9. FORADIL [Concomitant]
  10. TYLENOL (PARACEMATOL) [Concomitant]
  11. ATROVENT (IPARTROPIUM BROMIDE) [Concomitant]
  12. RIBELFAN (AMINOPHENAZONE, NOCAPINE, QUININE, SULFAMETHOXYPYRIDAZINE) [Concomitant]
  13. LISINOPRIL [Concomitant]

REACTIONS (7)
  - ATRIAL FIBRILLATION [None]
  - BLOOD CREATININE INCREASED [None]
  - DIARRHOEA [None]
  - DIZZINESS [None]
  - MUSCLE FATIGUE [None]
  - RENAL VEIN OCCLUSION [None]
  - VENTRICULAR FIBRILLATION [None]
